FAERS Safety Report 8839870 (Version 2)
Quarter: 2013Q2

REPORT INFORMATION
  Report Type: Spontaneous
  Country: DK (occurrence: CA)
  Receive Date: 20121015
  Receipt Date: 20130422
  Transmission Date: 20140414
  Serious: Yes (Hospitalization)
  Sender: FDA-Public Use
  Company Number: CA-FRI-1000039401

PATIENT
  Sex: Female

DRUGS (7)
  1. CELEXA [Suspect]
     Indication: DEPRESSION
     Dosage: 40 MG
     Dates: start: 20060831
  2. LAMICTAL [Suspect]
     Indication: PROPHYLAXIS
     Dosage: 25 MG
     Route: 048
     Dates: start: 201106
  3. LAMICTAL [Suspect]
     Indication: DEPRESSION
     Dosage: 100 MG
     Route: 048
     Dates: end: 2011
  4. LAMICTAL [Suspect]
     Indication: PROPHYLAXIS
     Dosage: 50 MG
     Dates: start: 2011, end: 20120420
  5. LAMICTAL [Suspect]
     Indication: DEPRESSION
  6. RITALIN [Suspect]
     Indication: ATTENTION DEFICIT/HYPERACTIVITY DISORDER
     Dosage: 45 MG
     Dates: start: 20080212, end: 2011
  7. RITALIN [Suspect]
     Dosage: 30 MG
     Dates: start: 2011

REACTIONS (4)
  - Arrhythmia [Unknown]
  - Dizziness [Unknown]
  - Palpitations [Recovered/Resolved]
  - Ventricular extrasystoles [Recovered/Resolved]
